FAERS Safety Report 16741257 (Version 1)
Quarter: 2019Q3

REPORT INFORMATION
  Report Type: Spontaneous
  Country: US (occurrence: US)
  Receive Date: 20190826
  Receipt Date: 20190826
  Transmission Date: 20191005
  Serious: No
  Sender: FDA-Public Use
  Company Number: US-LEO PHARMA-323768

PATIENT
  Sex: Female

DRUGS (1)
  1. PICATO [Suspect]
     Active Substance: INGENOL MEBUTATE
     Indication: PRECANCEROUS SKIN LESION
     Dosage: DAILY
     Route: 061
     Dates: start: 20190814, end: 20190816

REACTIONS (10)
  - Application site pain [Not Recovered/Not Resolved]
  - Application site scab [Recovered/Resolved]
  - Application site discolouration [Not Recovered/Not Resolved]
  - Expired product administered [Unknown]
  - Application site swelling [Recovering/Resolving]
  - Application site burn [Recovering/Resolving]
  - Application site erythema [Not Recovered/Not Resolved]
  - Application site discharge [Recovered/Resolved]
  - Inappropriate schedule of product administration [Unknown]
  - Incorrect product administration duration [Unknown]

NARRATIVE: CASE EVENT DATE: 20190814
